FAERS Safety Report 19575927 (Version 1)
Quarter: 2021Q3

REPORT INFORMATION
  Report Type: Spontaneous
  Country: US (occurrence: US)
  Receive Date: 20210716
  Receipt Date: 20210716
  Transmission Date: 20211014
  Serious: Yes (Other)
  Sender: FDA-Public Use
  Company Number: None

PATIENT
  Age: 75 Year
  Sex: Female
  Weight: 70.31 kg

DRUGS (18)
  1. LEVOTHYROXINE. [Concomitant]
     Active Substance: LEVOTHYROXINE
  2. ADVIL [Concomitant]
     Active Substance: IBUPROFEN
  3. AMITHRIPTYLINE [Concomitant]
  4. LISINOPRIL. [Concomitant]
     Active Substance: LISINOPRIL
  5. ASPIRIN. [Concomitant]
     Active Substance: ASPIRIN
  6. AMOXICILLIN. [Concomitant]
     Active Substance: AMOXICILLIN
  7. ATORVASTATIN [Concomitant]
     Active Substance: ATORVASTATIN
  8. VITAMIN D [Concomitant]
     Active Substance: VITAMIN D NOS
  9. BOTOX [Suspect]
     Active Substance: ONABOTULINUMTOXINA
     Indication: HEADACHE
     Dosage: ?          QUANTITY:MANY AT ONE TIME;?
     Dates: start: 20200107, end: 20200107
  10. CARVEDILOL. [Concomitant]
     Active Substance: CARVEDILOL
  11. SYSTANE (HYPROMELLOSE 2910 (4000 MPA.S)) [Concomitant]
     Active Substance: HYPROMELLOSE 2910 (4000 MPA.S)
  12. XIIDRA [Concomitant]
     Active Substance: LIFITEGRAST
  13. TYLENOL [Concomitant]
     Active Substance: ACETAMINOPHEN
  14. REFRESH SOLUTION NOS [Concomitant]
     Active Substance: CARBOXYMETHYLCELLULOSE SODIUM\GLYCERIN
  15. SPIRIVA [Concomitant]
     Active Substance: TIOTROPIUM BROMIDE MONOHYDRATE
  16. RESTASIS [Concomitant]
     Active Substance: CYCLOSPORINE
  17. TOBRAMYCIN AND DEXAMETHASONE [Concomitant]
     Active Substance: DEXAMETHASONE\TOBRAMYCIN
  18. XANAX [Concomitant]
     Active Substance: ALPRAZOLAM

REACTIONS (7)
  - Headache [None]
  - Eyelid ptosis [None]
  - Photophobia [None]
  - Dry eye [None]
  - Myalgia [None]
  - Injection site pain [None]
  - Lacrimation increased [None]

NARRATIVE: CASE EVENT DATE: 20200701
